FAERS Safety Report 8230923-7 (Version None)
Quarter: 2012Q1

REPORT INFORMATION
  Report Type: 
  Country: None (occurrence: None)
  Receive Date: 20120320
  Receipt Date: 20120309
  Transmission Date: 20120608
  Serious: Yes (Hospitalization)
  Sender: FDA-Public Use
  Company Number: 2012SP012855

PATIENT
  Sex: Female
  Weight: 2.76 kg

DRUGS (1)
  1. IMPLANON [Suspect]
     Indication: PREGNANCY
     Dosage: ;TRPL

REACTIONS (3)
  - MATERNAL DRUGS AFFECTING FOETUS [None]
  - SEPSIS NEONATAL [None]
  - HYPOTHERMIA NEONATAL [None]
